FAERS Safety Report 11703932 (Version 2)
Quarter: 2016Q1

REPORT INFORMATION
  Report Type: Spontaneous
  Country: US (occurrence: US)
  Receive Date: 20151106
  Receipt Date: 20160108
  Transmission Date: 20160525
  Serious: Yes (Other)
  Sender: FDA-Public Use
  Company Number: US-009507513-1510USA014429

PATIENT
  Age: 19 Year
  Sex: Female
  Weight: 70.75 kg

DRUGS (3)
  1. MIRENA [Concomitant]
     Active Substance: LEVONORGESTREL
     Indication: CONTRACEPTION
     Dosage: 20 MICROGRAM, UNK
     Route: 015
     Dates: start: 201510, end: 20151019
  2. NEXPLANON [Suspect]
     Active Substance: ETONOGESTREL
     Dosage: 68 MG, UNK
     Route: 058
     Dates: start: 201403, end: 201509
  3. NEXPLANON [Suspect]
     Active Substance: ETONOGESTREL
     Indication: CONTRACEPTION
     Dosage: 1 ROD/ 3 YEARS
     Route: 058
     Dates: start: 20151019, end: 20151026

REACTIONS (1)
  - Implant site infection [Recovered/Resolved]

NARRATIVE: CASE EVENT DATE: 20151024
